FAERS Safety Report 4391689-4 (Version None)
Quarter: 2004Q3

REPORT INFORMATION
  Report Type: 
  Country: None (occurrence: None)
  Receive Date: 20040702
  Receipt Date: 20040401
  Transmission Date: 20050211
  Serious: Yes (Other)
  Sender: FDA-Public Use
  Company Number: 2004UW06526

PATIENT
  Age: 72 Year
  Sex: Female
  Weight: 64.4108 kg

DRUGS (2)
  1. CRESTOR [Suspect]
     Indication: BLOOD CHOLESTEROL INCREASED
     Dosage: 5 MG PO
     Route: 048
     Dates: start: 20040201
  2. UNSPECIFIED [Concomitant]

REACTIONS (2)
  - FATIGUE [None]
  - PYREXIA [None]
